FAERS Safety Report 15061162 (Version 1)
Quarter: 2018Q2

REPORT INFORMATION
  Report Type: Spontaneous
  Country: US (occurrence: US)
  Receive Date: 20180625
  Receipt Date: 20180625
  Transmission Date: 20180711
  Serious: Yes (Hospitalization)
  Sender: FDA-Public Use
  Company Number: US-FRESENIUS MEDICAL CARE RENAL THERAPIES GROUP-FMC-1806-001124

PATIENT
  Age: 49 Year
  Sex: Female

DRUGS (12)
  1. NIFEDIPINE. [Concomitant]
     Active Substance: NIFEDIPINE
  2. PRILOSEC [Concomitant]
     Active Substance: OMEPRAZOLE MAGNESIUM
  3. ALLOPURINOL. [Concomitant]
     Active Substance: ALLOPURINOL
  4. LASIX [Concomitant]
     Active Substance: FUROSEMIDE
  5. VITAMINS NOS [Concomitant]
     Active Substance: VITAMINS
  6. CALCITRIOL. [Concomitant]
     Active Substance: CALCITRIOL
  7. LIPITOR [Concomitant]
     Active Substance: ATORVASTATIN CALCIUM
  8. DELFLEX WITH DEXTROSE 2.5% LOW MAGNESIUM LOW CALCIUM [Suspect]
     Active Substance: CALCIUM CHLORIDE\DEXTROSE\MAGNESIUM CHLORIDE\SODIUM CHLORIDE\SODIUM LACTATE
     Indication: END STAGE RENAL DISEASE
     Route: 033
  9. FERROUS GLUCONATE [Concomitant]
     Active Substance: FERROUS GLUCONATE
  10. LABETALOL [Concomitant]
     Active Substance: LABETALOL\LABETALOL HYDROCHLORIDE
  11. SENSIPAR [Concomitant]
     Active Substance: CINACALCET HYDROCHLORIDE
  12. LOSARTAN. [Concomitant]
     Active Substance: LOSARTAN

REACTIONS (2)
  - Bloody peritoneal effluent [Recovered/Resolved]
  - Abdominal pain [None]

NARRATIVE: CASE EVENT DATE: 20180614
